FAERS Safety Report 12212163 (Version 2)
Quarter: 2016Q2

REPORT INFORMATION
  Report Type: Report from Study
  Country: US (occurrence: US)
  Receive Date: 20160325
  Receipt Date: 20160603
  Transmission Date: 20160815
  Serious: Yes (Hospitalization)
  Sender: FDA-Public Use
  Company Number: US-ACTELION-A-NJ2016-133303

PATIENT
  Age: 59 Year
  Sex: Female

DRUGS (5)
  1. ADCIRCA [Concomitant]
     Active Substance: TADALAFIL
  2. MACITENTAN [Suspect]
     Active Substance: MACITENTAN
     Indication: PULMONARY HYPERTENSION
     Dosage: 10 MG, QD
     Route: 048
     Dates: start: 20150626
  3. DILTIAZEM [Concomitant]
     Active Substance: DILTIAZEM
  4. ELIQUIS [Concomitant]
     Active Substance: APIXABAN
  5. LETAIRIS [Concomitant]
     Active Substance: AMBRISENTAN

REACTIONS (8)
  - Asthenia [Unknown]
  - Kidney infection [Unknown]
  - Head injury [Unknown]
  - Pelvic fracture [Unknown]
  - Bronchitis [Unknown]
  - Upper respiratory tract infection [Unknown]
  - Fall [Unknown]
  - Blood electrolytes abnormal [Unknown]
